FAERS Safety Report 7690186-8 (Version None)
Quarter: 2011Q3

REPORT INFORMATION
  Report Type: 
  Country: None (occurrence: None)
  Receive Date: 20110811
  Receipt Date: 20110801
  Transmission Date: 20111222
  Serious: Yes (Hospitalization)
  Sender: FDA-Public Use
  Company Number: 2009SP021070

PATIENT
  Age: 27 Year
  Sex: Female
  Weight: 86.637 kg

DRUGS (3)
  1. NEURONTIN [Concomitant]
  2. AMITRIPTYLINE HCL [Concomitant]
  3. NUVARING [Suspect]
     Indication: CONTRACEPTION
     Dates: start: 20050501, end: 20060501

REACTIONS (19)
  - HYPOAESTHESIA [None]
  - ACUTE MYOCARDIAL INFARCTION [None]
  - OROPHARYNGEAL PAIN [None]
  - PREGNANCY [None]
  - IMMINENT ABORTION [None]
  - DEEP VEIN THROMBOSIS [None]
  - PULSE ABSENT [None]
  - PALPITATIONS [None]
  - ANXIETY [None]
  - PAIN [None]
  - RETAINED PLACENTA OR MEMBRANES [None]
  - MATERNAL EXPOSURE DURING PREGNANCY [None]
  - ARTERIAL OCCLUSIVE DISEASE [None]
  - ANAEMIA [None]
  - EMBOLISM [None]
  - ARTERIAL INSUFFICIENCY [None]
  - DEAFNESS [None]
  - SINUS TACHYCARDIA [None]
  - VAGINAL HAEMORRHAGE [None]
